FAERS Safety Report 21915995 (Version 1)
Quarter: 2023Q1

REPORT INFORMATION
  Report Type: Spontaneous
  Country: US (occurrence: None)
  Receive Date: 20230125
  Receipt Date: 20230125
  Transmission Date: 20230417
  Serious: No
  Sender: FDA-Public Use
  Company Number: None

PATIENT
  Sex: 0

DRUGS (1)
  1. METHYLPHENIDATE [Suspect]
     Active Substance: METHYLPHENIDATE

REACTIONS (6)
  - Hypersensitivity [None]
  - Muscle tightness [None]
  - Dry mouth [None]
  - Photosensitivity reaction [None]
  - Nausea [None]
  - Irritability [None]
